FAERS Safety Report 18863967 (Version 2)
Quarter: 2021Q3

REPORT INFORMATION
  Report Type: Report from Study
  Country: FR (occurrence: FR)
  Receive Date: 20210209
  Receipt Date: 20210722
  Transmission Date: 20211014
  Serious: Yes (Death, Hospitalization, Other)
  Sender: FDA-Public Use
  Company Number: FR-BRISTOL-MYERS SQUIBB COMPANY-BMS-2021-011650

PATIENT
  Age: 54 Year
  Sex: Female

DRUGS (1)
  1. NIVOLUMAB [Suspect]
     Active Substance: NIVOLUMAB
     Indication: RENAL CELL CARCINOMA
     Route: 065

REACTIONS (9)
  - Malignant neoplasm progression [Fatal]
  - Hepatic cytolysis [Unknown]
  - Visual impairment [Unknown]
  - Cervicobrachial syndrome [Unknown]
  - Vertigo [Unknown]
  - Asthenia [Recovered/Resolved]
  - Areflexia [Unknown]
  - Headache [Unknown]
  - Tumour obstruction [Unknown]

NARRATIVE: CASE EVENT DATE: 20190801
